FAERS Safety Report 18592401 (Version 1)
Quarter: 2020Q4

REPORT INFORMATION
  Report Type: Spontaneous
  Country: CH (occurrence: CH)
  Receive Date: 20201208
  Receipt Date: 20201208
  Transmission Date: 20210114
  Serious: Yes (Hospitalization, Other)
  Sender: FDA-Public Use
  Company Number: CH-009507513-2012CHE003048

PATIENT
  Sex: Female

DRUGS (16)
  1. ENTOCORT [Concomitant]
     Active Substance: BUDESONIDE
     Route: 048
  2. ROHYPNOL [Concomitant]
     Active Substance: FLUNITRAZEPAM
     Route: 048
  3. CUBICIN [Suspect]
     Active Substance: DAPTOMYCIN
     Route: 042
     Dates: start: 20190920, end: 20191028
  4. VANCOCIN [Suspect]
     Active Substance: VANCOMYCIN HYDROCHLORIDE
     Route: 042
     Dates: start: 20190823, end: 20190912
  5. VANCOCIN [Suspect]
     Active Substance: VANCOMYCIN HYDROCHLORIDE
     Route: 042
     Dates: start: 20190918, end: 20190920
  6. AMPHO MORONAL [Concomitant]
     Active Substance: AMPHOTERICIN B
     Route: 002
  7. AUGMENTIN [Concomitant]
     Active Substance: AMOXICILLIN\CLAVULANATE POTASSIUM
     Dates: start: 20190823, end: 20190827
  8. RIFAMPIN. [Concomitant]
     Active Substance: RIFAMPIN
     Dates: start: 20190829, end: 20190920
  9. RIFAMPIN. [Concomitant]
     Active Substance: RIFAMPIN
     Dates: start: 20190925, end: 20191028
  10. KCL HAUSMANN [Concomitant]
     Route: 048
  11. METRONIDAZOLE. [Concomitant]
     Active Substance: METRONIDAZOLE
     Dates: start: 20190819, end: 20190821
  12. SPIRICORT [Concomitant]
     Active Substance: PREDNISOLONE
     Route: 048
  13. CEFUROXIME. [Concomitant]
     Active Substance: CEFUROXIME
     Dates: start: 20190819, end: 20190821
  14. FUCIDIN (FUSIDATE SODIUM) [Concomitant]
     Active Substance: FUSIDATE SODIUM
     Dates: start: 20190912, end: 20190917
  15. POTASSIUM CHLORIDE. [Concomitant]
     Active Substance: POTASSIUM CHLORIDE
     Route: 048
  16. DUOTRAV [Concomitant]
     Active Substance: TIMOLOL MALEATE\TRAVOPROST
     Route: 047

REACTIONS (2)
  - Drug reaction with eosinophilia and systemic symptoms [Recovered/Resolved]
  - Pneumonitis [Recovered/Resolved]

NARRATIVE: CASE EVENT DATE: 201909
